FAERS Safety Report 5198050-3 (Version None)
Quarter: 2006Q4

REPORT INFORMATION
  Report Type: 
  Country: None (occurrence: None)
  Receive Date: 20061228
  Receipt Date: 20061214
  Transmission Date: 20070319
  Serious: Yes (Other)
  Sender: FDA-Public Use
  Company Number: 061215-0001127

PATIENT

DRUGS (1)
  1. NEOPROFEN [Suspect]
     Indication: DRUG USE FOR UNKNOWN INDICATION
     Dosage: IV
     Route: 042
     Dates: start: 20060101

REACTIONS (3)
  - CONDITION AGGRAVATED [None]
  - GASTRIC PERFORATION [None]
  - INTRAVENTRICULAR HAEMORRHAGE [None]
